FAERS Safety Report 8390757-X (Version None)
Quarter: 2012Q2

REPORT INFORMATION
  Report Type: 
  Country: None (occurrence: None)
  Receive Date: 20120529
  Receipt Date: 20120516
  Transmission Date: 20120825
  Serious: Yes (Other)
  Sender: FDA-Public Use
  Company Number: CA-JNJFOC-20120504778

PATIENT
  Sex: Female
  Weight: 73.6 kg

DRUGS (4)
  1. PREDNISONE [Concomitant]
     Route: 065
  2. REMICADE [Suspect]
     Indication: COLITIS ULCERATIVE
     Route: 042
     Dates: start: 20091109
  3. REMICADE [Suspect]
     Route: 042
     Dates: start: 20120314
  4. IMURAN [Concomitant]
     Route: 048

REACTIONS (2)
  - SMEAR CERVIX ABNORMAL [None]
  - SURGERY [None]
